FAERS Safety Report 6208626-X (Version None)
Quarter: 2009Q2

REPORT INFORMATION
  Report Type: 
  Country: None (occurrence: None)
  Receive Date: 20090529
  Receipt Date: 20090525
  Transmission Date: 20091009
  Serious: Yes (Other)
  Sender: FDA-Public Use
  Company Number: IT-ELI_LILLY_AND_COMPANY-IT200905004787

PATIENT
  Sex: Male

DRUGS (3)
  1. HUMALOG [Suspect]
     Indication: DIABETES MELLITUS
     Dosage: 23 D/F, DAILY (1/D)
     Route: 058
     Dates: start: 20080101, end: 20090421
  2. LANTUS [Concomitant]
     Indication: DIABETES MELLITUS
     Dosage: 12 D/F, DAILY (1/D)
     Route: 058
     Dates: start: 20080101, end: 20090420
  3. ANTRA [Concomitant]
     Indication: GASTRITIS
     Dosage: 1 D/F, DAILY (1/D)
     Route: 048
     Dates: start: 20080101, end: 20090421

REACTIONS (1)
  - HYPOGLYCAEMIC UNCONSCIOUSNESS [None]
